FAERS Safety Report 4709128-X (Version None)
Quarter: 2005Q3

REPORT INFORMATION
  Report Type: 
  Country: None (occurrence: None)
  Receive Date: 20050708
  Receipt Date: 20050629
  Transmission Date: 20060218
  Serious: Yes (Hospitalization)
  Sender: FDA-Public Use
  Company Number: PHHO2005JP10499

PATIENT
  Age: 68 Year
  Sex: Female

DRUGS (1)
  1. DIOVAN [Suspect]
     Indication: HYPERTENSION
     Dosage: UNK, UNK
     Dates: start: 20031007, end: 20031014

REACTIONS (4)
  - CEREBRAL INFARCTION [None]
  - DYSARTHRIA [None]
  - GASTRITIS [None]
  - HEMIPLEGIA [None]
